FAERS Safety Report 9342031 (Version 1)
Quarter: 2013Q2

REPORT INFORMATION
  Report Type: Spontaneous
  Country: IT (occurrence: None)
  Receive Date: 20130606
  Receipt Date: 20130606
  Transmission Date: 20140414
  Serious: Yes (Hospitalization)
  Sender: FDA-Public Use
  Company Number: AUR-APL-2013-04616

PATIENT
  Age: 33 Year
  Sex: Female

DRUGS (1)
  1. AMOXICILLIN (AMOXICILLIN) [Suspect]
     Indication: PHARYNGITIS
     Dosage: 3 GM, 1 D, ORAL
     Route: 048
     Dates: start: 20130318, end: 20130323

REACTIONS (2)
  - Angioedema [None]
  - Pruritus [None]
